FAERS Safety Report 15013187 (Version 7)
Quarter: 2024Q4

REPORT INFORMATION
  Report Type: Spontaneous
  Country: IT (occurrence: IT)
  Receive Date: 20180614
  Receipt Date: 20241223
  Transmission Date: 20250114
  Serious: Yes (Other)
  Sender: ALEXION PHARMACEUTICALS
  Company Number: IT-ALEXION PHARMACEUTICALS INC-A201807235

PATIENT
  Age: 8 Month

DRUGS (14)
  1. SOLIRIS [Suspect]
     Active Substance: ECULIZUMAB
     Indication: Atypical haemolytic uraemic syndrome
     Dosage: 300 MG, QW, STARTED ON DAY +40
     Route: 065
  2. SOLIRIS [Suspect]
     Active Substance: ECULIZUMAB
     Dosage: 300 MG, QW, STARTED ON DAY +40
     Route: 065
  3. SOLIRIS [Suspect]
     Active Substance: ECULIZUMAB
     Dosage: 300 MG, QW, STARTED ON DAY +40
     Route: 065
  4. SOLIRIS [Suspect]
     Active Substance: ECULIZUMAB
     Dosage: 300 MG, QW, STARTED ON DAY +40
     Route: 065
  5. DEFITELIO [Suspect]
     Active Substance: DEFIBROTIDE SODIUM
     Indication: Prophylaxis
     Dosage: 25 MILLIGRAM/KILOGRAM, QD
     Route: 065
  6. DEFITELIO [Suspect]
     Active Substance: DEFIBROTIDE SODIUM
     Indication: Venoocclusive disease
     Dosage: 25 MILLIGRAM/KILOGRAM, QD
     Route: 065
  7. DEFITELIO [Suspect]
     Active Substance: DEFIBROTIDE SODIUM
     Indication: Off label use
     Dosage: 25 MILLIGRAM/KILOGRAM, QD
     Route: 065
  8. DEFITELIO [Suspect]
     Active Substance: DEFIBROTIDE SODIUM
     Dosage: 25 MILLIGRAM/KILOGRAM, QD
     Route: 065
  9. RITUXIMAB [Suspect]
     Active Substance: RITUXIMAB
     Indication: Anti-platelet antibody
     Dosage: 375 MILLIGRAM/SQ. METER, QW
     Route: 065
  10. RITUXIMAB [Suspect]
     Active Substance: RITUXIMAB
     Indication: Anti-complement antibody
     Dosage: 375 MILLIGRAM/SQ. METER, QW
     Route: 065
  11. BUSULFAN [Suspect]
     Active Substance: BUSULFAN
     Indication: Stem cell transplant
     Dosage: 80 MILLIGRAM/SQ. METER, QID
  12. BUSULFAN [Suspect]
     Active Substance: BUSULFAN
     Dosage: 80 MILLIGRAM/SQ. METER, QID
     Route: 042
  13. BUSULFAN [Suspect]
     Active Substance: BUSULFAN
     Dosage: 375 MILLIGRAM/SQ. METER, QD
  14. BUSULFAN [Suspect]
     Active Substance: BUSULFAN
     Dosage: 375 MILLIGRAM/SQ. METER, QD
     Route: 042

REACTIONS (7)
  - Pulmonary oedema [Unknown]
  - Post procedural haemorrhage [Recovered/Resolved]
  - Bone marrow failure [Recovered/Resolved]
  - Product administration error [Unknown]
  - Atypical haemolytic uraemic syndrome [Recovered/Resolved]
  - Anaemia [Recovered/Resolved]
  - Thrombocytopenia [Recovered/Resolved]
